FAERS Safety Report 5590130-3 (Version None)
Quarter: 2008Q1

REPORT INFORMATION
  Report Type: 
  Country: None (occurrence: None)
  Receive Date: 20080114
  Receipt Date: 20070606
  Transmission Date: 20080703
  Serious: No
  Sender: FDA-Public Use
  Company Number: US-ABBOTT-07P-163-0371905-00

PATIENT
  Sex: Male
  Weight: 9.08 kg

DRUGS (3)
  1. OMNICEF [Suspect]
     Indication: EAR PAIN
     Route: 048
     Dates: start: 20070605
  2. PARACETAMOL [Concomitant]
     Indication: DRUG USE FOR UNKNOWN INDICATION
  3. IBUPROFEN [Concomitant]
     Indication: DRUG USE FOR UNKNOWN INDICATION

REACTIONS (2)
  - DIARRHOEA [None]
  - FAECES DISCOLOURED [None]
